FAERS Safety Report 10812539 (Version 2)
Quarter: 2015Q1

REPORT INFORMATION
  Report Type: Report from Study
  Country: FR (occurrence: FR)
  Receive Date: 20150218
  Receipt Date: 20150331
  Transmission Date: 20150721
  Serious: Yes (Hospitalization)
  Sender: FDA-Public Use
  Company Number: FR-ROCHE-1538427

PATIENT
  Age: 75 Year
  Sex: Female
  Weight: 55.07 kg

DRUGS (5)
  1. RANIBIZUMAB [Suspect]
     Active Substance: RANIBIZUMAB
     Indication: MACULAR OEDEMA
     Route: 050
     Dates: start: 20140520
  2. FLECAINIDE [Concomitant]
     Active Substance: FLECAINIDE
     Route: 065
     Dates: start: 200308
  3. FUROSEMIDE. [Concomitant]
     Active Substance: FUROSEMIDE
     Route: 065
     Dates: start: 201308
  4. DABIGATRAN [Concomitant]
     Active Substance: DABIGATRAN
     Route: 065
     Dates: start: 201308
  5. RANIBIZUMAB [Suspect]
     Active Substance: RANIBIZUMAB
     Indication: TELANGIECTASIA
     Dosage: MOST RECENT DOSE PRIOR TO SAE RECEIVED ON 05/SEP/2014
     Route: 050
     Dates: start: 20140905, end: 20140905

REACTIONS (1)
  - Vitreous adhesions [Recovered/Resolved]

NARRATIVE: CASE EVENT DATE: 20141104
